FAERS Safety Report 9167471 (Version 1)
Quarter: 2013Q1

REPORT INFORMATION
  Report Type: Spontaneous
  Country: TR (occurrence: TR)
  Receive Date: 20130318
  Receipt Date: 20130318
  Transmission Date: 20140127
  Serious: Yes (Other)
  Sender: FDA-Public Use
  Company Number: TR-JNJFOC-20130305041

PATIENT
  Age: 84 Year
  Sex: Female
  Weight: 76.19 kg

DRUGS (6)
  1. XARELTO [Suspect]
     Indication: EMBOLISM VENOUS
     Route: 048
     Dates: start: 20121210
  2. XARELTO [Suspect]
     Indication: DEEP VEIN THROMBOSIS
     Route: 048
     Dates: start: 20121210
  3. PARACETAMOL [Concomitant]
     Route: 065
  4. OMEPRAZOLE [Concomitant]
     Route: 065
  5. PROPYCIL [Concomitant]
     Route: 065
  6. HYDROCHLOROTHIAZIDE [Concomitant]
     Route: 065

REACTIONS (2)
  - Deep vein thrombosis [Not Recovered/Not Resolved]
  - Drug ineffective [Unknown]
